FAERS Safety Report 25478595 (Version 1)
Quarter: 2025Q2

REPORT INFORMATION
  Report Type: Report from Study
  Country: CA (occurrence: CA)
  Receive Date: 20250625
  Receipt Date: 20250625
  Transmission Date: 20250716
  Serious: Yes (Other)
  Sender: TAKEDA
  Company Number: CA-TAKEDA-2025TUS057056

PATIENT
  Sex: Male

DRUGS (6)
  1. VEDOLIZUMAB [Suspect]
     Active Substance: VEDOLIZUMAB
     Indication: Crohn^s disease
  2. PREDNISONE [Concomitant]
     Active Substance: PREDNISONE
  3. PENTASA [Concomitant]
     Active Substance: MESALAMINE
  4. FISH OIL [Concomitant]
     Active Substance: FISH OIL
  5. CANNABIDIOL\HERBALS [Concomitant]
     Active Substance: CANNABIDIOL\HERBALS
  6. Centrum advance 50+ adults [Concomitant]

REACTIONS (3)
  - Crohn^s disease [Unknown]
  - Asthenia [Unknown]
  - Cough [Unknown]
